FAERS Safety Report 9147885 (Version 2)
Quarter: 2013Q1

REPORT INFORMATION
  Report Type: Spontaneous
  Country: US (occurrence: US)
  Receive Date: 20130307
  Receipt Date: 20130319
  Transmission Date: 20140127
  Serious: Yes (Other)
  Sender: FDA-Public Use
  Company Number: CHPA2013US004072

PATIENT
  Age: 60 Year
  Sex: Female

DRUGS (2)
  1. VOLTAREN GEL [Suspect]
     Dosage: UNK, QID
     Route: 061
     Dates: end: 20130228
  2. COUMADIN ^BOOTS^ [Concomitant]
     Dosage: 10 MG, QD
     Route: 048

REACTIONS (2)
  - Thrombosis [Recovering/Resolving]
  - Activities of daily living impaired [Recovering/Resolving]
